FAERS Safety Report 7250087-6 (Version None)
Quarter: 2011Q1

REPORT INFORMATION
  Report Type: 
  Country: None (occurrence: None)
  Receive Date: 20110128
  Receipt Date: 20101220
  Transmission Date: 20110831
  Serious: Yes (Hospitalization, Other)
  Sender: FDA-Public Use
  Company Number: US-BAYER-201017361NA

PATIENT
  Sex: Female

DRUGS (3)
  1. YASMIN [Suspect]
     Indication: OVARIAN CYST
     Dosage: UNK UNK, QD
     Route: 048
     Dates: start: 20060401, end: 20090801
  2. PANTOPRAZOLE [Concomitant]
  3. YAZ [Suspect]
     Indication: PRODUCT USED FOR UNKNOWN INDICATION
     Route: 048
     Dates: start: 20060401, end: 20090501

REACTIONS (8)
  - NAUSEA [None]
  - CHEST PAIN [None]
  - VOMITING [None]
  - ABDOMINAL PAIN UPPER [None]
  - BACK PAIN [None]
  - GASTROOESOPHAGEAL REFLUX DISEASE [None]
  - CHOLELITHIASIS [None]
  - BILIARY COLIC [None]
